FAERS Safety Report 7836888-1 (Version None)
Quarter: 2011Q4

REPORT INFORMATION
  Report Type: 
  Country: None (occurrence: None)
  Receive Date: 20111024
  Receipt Date: 20110120
  Transmission Date: 20120403
  Serious: No
  Sender: FDA-Public Use
  Company Number: US-ABBOTT-10P-163-0690484-00

PATIENT
  Age: 36 Year
  Sex: Female
  Weight: 54.48 kg

DRUGS (8)
  1. BIRTH CONTROL PILLS [Concomitant]
     Indication: PRODUCT USED FOR UNKNOWN INDICATION
  2. CLOMID [Concomitant]
     Indication: PRODUCT USED FOR UNKNOWN INDICATION
     Dosage: 3 CYCLES
  3. MENOPUR [Concomitant]
     Indication: PRODUCT USED FOR UNKNOWN INDICATION
  4. ENDOMETRIN [Concomitant]
     Indication: PRODUCT USED FOR UNKNOWN INDICATION
  5. LUPRON [Suspect]
     Indication: PRODUCT USED FOR UNKNOWN INDICATION
  6. BRAVELLE [Concomitant]
     Indication: PRODUCT USED FOR UNKNOWN INDICATION
  7. METFORMIN HCL [Concomitant]
     Indication: PRODUCT USED FOR UNKNOWN INDICATION
     Dosage: 2 CYCLES
  8. VIVELLE [Concomitant]
     Indication: PRODUCT USED FOR UNKNOWN INDICATION
     Route: 062

REACTIONS (7)
  - OVULATION DISORDER [None]
  - ABDOMINAL PAIN [None]
  - GESTATIONAL DIABETES [None]
  - MUSCLE SPASMS [None]
  - HAEMORRHAGE [None]
  - ABDOMINAL DISTENSION [None]
  - HEADACHE [None]
